FAERS Safety Report 12831296 (Version 2)
Quarter: 2016Q4

REPORT INFORMATION
  Report Type: Spontaneous
  Country: US (occurrence: US)
  Receive Date: 20161008
  Receipt Date: 20161008
  Transmission Date: 20170207
  Serious: No
  Sender: FDA-Public Use
  Company Number: US-009507513-1609USA012699

PATIENT
  Age: 17 Year
  Sex: Female
  Weight: 90.7 kg

DRUGS (1)
  1. NEXPLANON [Suspect]
     Active Substance: ETONOGESTREL
     Dosage: 1 ROD EVERY 3 YEARS
     Route: 059
     Dates: start: 20160920, end: 20160926

REACTIONS (5)
  - Complication of device insertion [Recovered/Resolved]
  - Device expulsion [Recovered/Resolved]
  - Implant site bruising [Recovered/Resolved]
  - Product quality issue [Unknown]
  - Implant site pain [Recovered/Resolved]

NARRATIVE: CASE EVENT DATE: 201609
